FAERS Safety Report 5201242-8 (Version None)
Quarter: 2007Q1

REPORT INFORMATION
  Report Type: 
  Country: None (occurrence: None)
  Receive Date: 20070108
  Receipt Date: 20061226
  Transmission Date: 20070707
  Serious: Yes (Hospitalization)
  Sender: FDA-Public Use
  Company Number: FR-BRISTOL-MYERS SQUIBB COMPANY-13628250

PATIENT
  Age: 38 Year
  Sex: Female

DRUGS (4)
  1. APROVEL TABS 75 MG [Suspect]
     Dates: start: 20051110, end: 20061114
  2. EPITOMAX [Suspect]
     Dates: start: 20061020, end: 20061121
  3. DEPAKENE [Concomitant]
  4. URBANYL [Concomitant]

REACTIONS (3)
  - HYPERKALAEMIA [None]
  - METABOLIC ACIDOSIS [None]
  - RENAL FAILURE ACUTE [None]
